FAERS Safety Report 18181635 (Version 1)
Quarter: 2020Q3

REPORT INFORMATION
  Report Type: Spontaneous
  Country: ES (occurrence: ES)
  Receive Date: 20200821
  Receipt Date: 20200821
  Transmission Date: 20201103
  Serious: Yes (Life-Threatening, Hospitalization)
  Sender: FDA-Public Use
  Company Number: ES-CADILA HEALTHCARE LIMITED-ES-ZYDUS-027417

PATIENT

DRUGS (6)
  1. OXCARBAZEPINA [Suspect]
     Active Substance: OXCARBAZEPINE
     Indication: INTENTIONAL OVERDOSE
     Dosage: 18 GRAM,(INTERVAL :1 TOTAL)
     Route: 048
     Dates: start: 20170306, end: 20170306
  2. PAROXETINE. [Suspect]
     Active Substance: PAROXETINE
     Indication: INTENTIONAL OVERDOSE
     Dosage: 580 MILLIGRAM,(INTERVAL :1 DAYS)
     Route: 048
     Dates: start: 20170306, end: 20170306
  3. OLANZAPINE. [Suspect]
     Active Substance: OLANZAPINE
     Indication: INTENTIONAL OVERDOSE
     Dosage: 240 MILLIGRAM,(INTERVAL :1 TOTAL)
     Route: 048
     Dates: start: 20170306, end: 20170306
  4. CLONAZEPAM. [Suspect]
     Active Substance: CLONAZEPAM
     Indication: INTENTIONAL OVERDOSE
     Dosage: 180 MILLIGRAM,(INTERVAL :1 TOTAL)
     Route: 048
     Dates: start: 20170306, end: 20170306
  5. PAROXETINE. [Concomitant]
     Active Substance: PAROXETINE
     Indication: PERSONALITY DISORDER
     Dosage: 20 MILLIGRAM,(INTERVAL :1 DAYS)
     Route: 048
     Dates: start: 20151113, end: 20160305
  6. CLONAZEPAM. [Concomitant]
     Active Substance: CLONAZEPAM
     Indication: PERSONALITY DISORDER
     Dosage: 2 MILLIGRAM,(INTERVAL :1 DAYS)
     Route: 048
     Dates: start: 201607, end: 20170305

REACTIONS (2)
  - Coma [Recovered/Resolved]
  - Intentional overdose [Recovered/Resolved]

NARRATIVE: CASE EVENT DATE: 20170306
